FAERS Safety Report 24897964 (Version 1)
Quarter: 2025Q1

REPORT INFORMATION
  Report Type: Report from Study
  Country: IN (occurrence: IN)
  Receive Date: 20250129
  Receipt Date: 20250129
  Transmission Date: 20250409
  Serious: Yes (Death)
  Sender: ROCHE
  Company Number: IN-ROCHE-10000114745

PATIENT
  Age: 67 Year
  Sex: Male

DRUGS (4)
  1. TECENTRIQ [Suspect]
     Active Substance: ATEZOLIZUMAB
     Indication: Hepatocellular carcinoma
     Route: 040
     Dates: start: 20240813
  2. TECENTRIQ [Suspect]
     Active Substance: ATEZOLIZUMAB
     Route: 040
  3. AVASTIN [Suspect]
     Active Substance: BEVACIZUMAB
     Indication: Hepatocellular carcinoma
     Route: 040
     Dates: start: 20240813
  4. AVASTIN [Suspect]
     Active Substance: BEVACIZUMAB
     Route: 040

REACTIONS (2)
  - Fatigue [Unknown]
  - Hepatic cancer [Fatal]
